FAERS Safety Report 9288759 (Version 1)
Quarter: 2013Q2

REPORT INFORMATION
  Report Type: Spontaneous
  Country: US (occurrence: US)
  Receive Date: 20130514
  Receipt Date: 20130514
  Transmission Date: 20140414
  Serious: Yes (Hospitalization, Other)
  Sender: FDA-Public Use
  Company Number: US-PFIZER INC-2013148048

PATIENT
  Age: 51 Year
  Sex: Female
  Weight: 163 kg

DRUGS (17)
  1. XELJANZ [Suspect]
     Indication: RHEUMATOID ARTHRITIS
     Dosage: UNK
     Dates: start: 20130422
  2. TOPROL [Concomitant]
     Dosage: UNK
  3. AMLODIPINE [Concomitant]
     Dosage: UNK
  4. SYNTHROID [Concomitant]
     Dosage: UNK
  5. CRESTOR [Concomitant]
     Dosage: UNK
  6. TRACLEER [Concomitant]
     Dosage: UNK
  7. TYVASO [Concomitant]
     Dosage: UNK
  8. FLUOXETINE [Concomitant]
     Dosage: UNK
  9. RANITIDINE [Concomitant]
     Dosage: UNK
  10. FOLIC ACID [Concomitant]
     Dosage: UNK
  11. VITAMIN C [Concomitant]
     Dosage: UNK
  12. VITAMIN B12 [Concomitant]
     Dosage: UNK
  13. IRON [Concomitant]
     Dosage: UNK
  14. SOMA [Concomitant]
     Dosage: UNK
  15. ACETAMINOPHEN W/OXYCODONE [Concomitant]
     Dosage: UNK
  16. METHOTREXATE [Concomitant]
     Dosage: UNK
  17. ORENCIA [Concomitant]
     Dosage: UNK

REACTIONS (2)
  - Endometrial cancer [Unknown]
  - Pulmonary hypertension [Unknown]
